FAERS Safety Report 22121014 (Version 4)
Quarter: 2023Q2

REPORT INFORMATION
  Report Type: Spontaneous
  Country: US (occurrence: US)
  Receive Date: 20230321
  Receipt Date: 20230515
  Transmission Date: 20230722
  Serious: No
  Sender: FDA-Public Use
  Company Number: US-PFIZER INC-202300114355

PATIENT
  Age: 29 Year
  Sex: Female
  Weight: 68.04 kg

DRUGS (2)
  1. GENOTROPIN [Suspect]
     Active Substance: SOMATROPIN
     Indication: Secondary adrenocortical insufficiency
     Dosage: 0.6 MG, DAILY
     Dates: start: 202303
  2. GENOTROPIN [Suspect]
     Active Substance: SOMATROPIN
     Indication: Pituitary tumour

REACTIONS (5)
  - Off label use [Unknown]
  - Device use issue [Unknown]
  - Drug dose omission by device [Unknown]
  - Device breakage [Unknown]
  - Device mechanical issue [Unknown]

NARRATIVE: CASE EVENT DATE: 20230301
